FAERS Safety Report 12288023 (Version 2)
Quarter: 2016Q2

REPORT INFORMATION
  Report Type: Spontaneous
  Country: TW (occurrence: TW)
  Receive Date: 20160420
  Receipt Date: 20160523
  Transmission Date: 20160815
  Serious: Yes (Other)
  Sender: FDA-Public Use
  Company Number: TW-ABBVIE-16P-153-1609084-00

PATIENT
  Age: 48 Year
  Sex: Female

DRUGS (1)
  1. LEUPLIN SR [Suspect]
     Active Substance: LEUPROLIDE ACETATE
     Indication: ENDOMETRIOSIS
     Dosage: 11.25 MG, Q3MONTHS
     Route: 058
     Dates: start: 20151221

REACTIONS (2)
  - Injection site cellulitis [Not Recovered/Not Resolved]
  - Cellulitis [Unknown]
